FAERS Safety Report 13746872 (Version 4)
Quarter: 2017Q4

REPORT INFORMATION
  Report Type: Spontaneous
  Country: BE (occurrence: BE)
  Receive Date: 20170712
  Receipt Date: 20171003
  Transmission Date: 20180320
  Serious: Yes (Hospitalization)
  Sender: FDA-Public Use
  Company Number: BE-SA-2017SA120623

PATIENT
  Sex: Male

DRUGS (1)
  1. LEMTRADA [Suspect]
     Active Substance: ALEMTUZUMAB
     Route: 041
     Dates: start: 201607

REACTIONS (6)
  - Immune thrombocytopenic purpura [Recovering/Resolving]
  - Mouth haemorrhage [Recovered/Resolved]
  - Petechiae [Recovered/Resolved]
  - Platelet count decreased [Not Recovered/Not Resolved]
  - Haematochezia [Recovered/Resolved]
  - Gingival bleeding [Recovered/Resolved]

NARRATIVE: CASE EVENT DATE: 20170630
